FAERS Safety Report 6730170-1 (Version None)
Quarter: 2010Q2

REPORT INFORMATION
  Report Type: 
  Country: None (occurrence: None)
  Receive Date: 20100513
  Receipt Date: 20100430
  Transmission Date: 20101027
  Serious: Yes (Life-Threatening)
  Sender: FDA-Public Use
  Company Number: CIO10006255

PATIENT
  Age: 8 Month
  Sex: Male

DRUGS (1)
  1. PEPTO-BISMOL, VERSION/FLAVOR UNKNOWN (BISMUTH SUBSALICYLATE 262 OR 525 [Suspect]
     Dosage: ORAL
     Route: 048
     Dates: start: 20100430, end: 20100430

REACTIONS (2)
  - ACCIDENTAL DRUG INTAKE BY CHILD [None]
  - APNOEA [None]
